FAERS Safety Report 19469409 (Version 2)
Quarter: 2021Q3

REPORT INFORMATION
  Report Type: Other
  Country: US (occurrence: US)
  Receive Date: 20210629
  Receipt Date: 20210706
  Transmission Date: 20211014
  Serious: No
  Sender: FDA-Public Use
  Company Number: US-ROCHE-2855310

PATIENT
  Sex: Female

DRUGS (1)
  1. OCREVUS [Suspect]
     Active Substance: OCRELIZUMAB
     Indication: RELAPSING MULTIPLE SCLEROSIS
     Dosage: YES, DATE OF TREATMENT: 05?JUN?2020, 22?NOV?2019, 06?DEC?2019
     Route: 065
     Dates: start: 20191122

REACTIONS (1)
  - Herpes zoster [Unknown]
